FAERS Safety Report 15926661 (Version 2)
Quarter: 2019Q1

REPORT INFORMATION
  Report Type: Spontaneous
  Country: US (occurrence: US)
  Receive Date: 20190205
  Receipt Date: 20190219
  Transmission Date: 20190417
  Serious: No
  Sender: FDA-Public Use
  Company Number: US-ALLERGAN-1846203US

PATIENT
  Age: 50 Year
  Sex: Female
  Weight: 56.69 kg

DRUGS (8)
  1. CAMILA [Concomitant]
     Active Substance: NORETHINDRONE
     Indication: CONTRACEPTION
  2. BOTOX [Suspect]
     Active Substance: ONABOTULINUMTOXINA
     Indication: MIGRAINE
     Dosage: 155 UNITS, SINGLE
     Route: 030
     Dates: start: 20180918, end: 20180918
  3. ARMOUR THYROID [Concomitant]
     Active Substance: THYROID, PORCINE
     Indication: AUTOIMMUNE THYROIDITIS
     Dosage: 90 MG, QD
     Route: 065
     Dates: start: 2017
  4. CAMILA [Concomitant]
     Active Substance: NORETHINDRONE
     Indication: ENDOMETRIOSIS
     Dosage: UNK, QD
     Route: 065
  5. BOTOX [Suspect]
     Active Substance: ONABOTULINUMTOXINA
     Dosage: 155 UNITS, SINGLE
     Route: 030
  6. CLARITIN [Concomitant]
     Active Substance: LORATADINE
     Indication: HYPERSENSITIVITY
     Dosage: UNK
     Route: 065
  7. CLARITIN [Concomitant]
     Active Substance: LORATADINE
     Dosage: UNK
  8. BOTOX [Suspect]
     Active Substance: ONABOTULINUMTOXINA
     Dosage: 155 UNITS, SINGLE
     Route: 030
     Dates: start: 201806, end: 201806

REACTIONS (12)
  - Wrong technique in product usage process [Unknown]
  - Migraine [Unknown]
  - Injection site pain [Recovering/Resolving]
  - Headache [Unknown]
  - Respiratory tract congestion [Not Recovered/Not Resolved]
  - Facial pain [Recovering/Resolving]
  - Dizziness [Not Recovered/Not Resolved]
  - Musculoskeletal pain [Recovering/Resolving]
  - Pain in jaw [Recovering/Resolving]
  - Injection site rash [Unknown]
  - Disturbance in attention [Not Recovered/Not Resolved]
  - Nausea [Unknown]

NARRATIVE: CASE EVENT DATE: 20180918
